FAERS Safety Report 11788867 (Version 1)
Quarter: 2015Q4

REPORT INFORMATION
  Report Type: Spontaneous
  Country: TR (occurrence: TR)
  Receive Date: 20151201
  Receipt Date: 20151201
  Transmission Date: 20160305
  Serious: Yes (Life-Threatening, Hospitalization, Other)
  Sender: FDA-Public Use
  Company Number: TR-WATSON-2015-13045

PATIENT
  Age: 63 Year
  Sex: Male

DRUGS (5)
  1. HALOPERIDOL LACTATE (WATSON LABORATORIES) [Suspect]
     Active Substance: HALOPERIDOL LACTATE
     Dosage: 5 MG, DAILY
     Route: 065
  2. HALOPERIDOL LACTATE (WATSON LABORATORIES) [Suspect]
     Active Substance: HALOPERIDOL LACTATE
     Indication: SCHIZOPHRENIA
     Dosage: 20 MG, SINGLE
     Route: 030
  3. BIPERIDEN [Concomitant]
     Active Substance: BIPERIDEN
     Indication: SCHIZOPHRENIA
     Dosage: 4 MG, SINGLE
     Route: 030
  4. CHLORPROMAZINE HYDROCHLORIDE (WATSON LABORATORIES) [Suspect]
     Active Substance: CHLORPROMAZINE HYDROCHLORIDE
     Indication: SCHIZOPHRENIA
     Dosage: 50 MG, SINGLE
     Route: 030
  5. BIPERIDEN [Concomitant]
     Active Substance: BIPERIDEN
     Dosage: 2 MG, DAILY
     Route: 065

REACTIONS (1)
  - Myxoedema coma [Recovered/Resolved]
